FAERS Safety Report 9859756 (Version 1)
Quarter: 2014Q1

REPORT INFORMATION
  Report Type: Spontaneous
  Country: US (occurrence: US)
  Receive Date: 20140131
  Receipt Date: 20140131
  Transmission Date: 20141002
  Serious: Yes (Death)
  Sender: FDA-Public Use
  Company Number: US-BRISTOL-MYERS SQUIBB COMPANY-20128302

PATIENT
  Sex: 0

DRUGS (1)
  1. ONGLYZA TABS [Suspect]
     Dosage: UNTIL 20-JAN-2013.
     Dates: start: 20110608

REACTIONS (1)
  - Pancreatic carcinoma [Fatal]
